FAERS Safety Report 15682985 (Version 1)
Quarter: 2018Q4

REPORT INFORMATION
  Report Type: Spontaneous
  Country: FR (occurrence: FR)
  Receive Date: 20181203
  Receipt Date: 20181203
  Transmission Date: 20190205
  Serious: Yes (Other)
  Sender: FDA-Public Use
  Company Number: FR-AUROBINDO-AUR-APL-2018-057848

PATIENT
  Age: 59 Year
  Sex: Male
  Weight: 106 kg

DRUGS (7)
  1. ULTRAVIST [Suspect]
     Active Substance: IOPROMIDE
     Indication: DIAGNOSTIC PROCEDURE
     Dosage: UNK
     Route: 042
     Dates: start: 20181025, end: 20181025
  2. PARACETAMOL [Suspect]
     Active Substance: ACETAMINOPHEN
     Indication: PAIN
     Dosage: 3 GRAM
     Route: 048
     Dates: start: 20181026, end: 20181102
  3. FENTANYL MYLAN [Concomitant]
     Active Substance: FENTANYL
     Indication: SEDATION
     Dosage: 3000 MICROGRAM
     Route: 042
     Dates: start: 20181026
  4. ORBENINE [Suspect]
     Active Substance: CLOXACILLIN SODIUM
     Indication: STAPHYLOCOCCAL INFECTION
     Dosage: 6 GRAM, DAILY
     Route: 042
     Dates: start: 20181029, end: 20181101
  5. THIOPENTAL PANPHARMA [Concomitant]
     Active Substance: THIOPENTAL
     Indication: SEDATION
     Dosage: 4700 MILLIGRAM
     Route: 042
     Dates: start: 20181027
  6. MIDAZOLAM [Concomitant]
     Active Substance: MIDAZOLAM HYDROCHLORIDE
     Indication: SEDATION
     Dosage: 183 MILLIGRAM
     Route: 042
     Dates: start: 20181026
  7. MOVICOL [Suspect]
     Active Substance: POLYETHYLENE GLYCOL 3350\POTASSIUM CHLORIDE\SODIUM BICARBONATE\SODIUM CHLORIDE
     Indication: CONSTIPATION
     Dosage: UNK
     Route: 048
     Dates: start: 20181028, end: 20181102

REACTIONS (1)
  - Erythema multiforme [Recovering/Resolving]

NARRATIVE: CASE EVENT DATE: 20181101
